FAERS Safety Report 7498840-8 (Version None)
Quarter: 2011Q2

REPORT INFORMATION
  Report Type: 
  Country: None (occurrence: None)
  Receive Date: 20110524
  Receipt Date: 20110512
  Transmission Date: 20111010
  Serious: Yes (Hospitalization, Other)
  Sender: FDA-Public Use
  Company Number: DE-AMGEN-DEUSP2011025351

PATIENT
  Sex: Female
  Weight: 61 kg

DRUGS (12)
  1. PREDNISONE [Concomitant]
     Indication: RHEUMATOID ARTHRITIS
     Dosage: 4 MG, 1X/DAY
     Route: 048
     Dates: start: 20100524, end: 20100726
  2. PANTOZOL                           /01263202/ [Concomitant]
     Indication: GASTRITIS PROPHYLAXIS
     Dosage: 20 MG, 1X/DAY
     Route: 048
     Dates: start: 20100524, end: 20100726
  3. MINERALS NOS [Concomitant]
     Indication: PROPHYLAXIS OF NEURAL TUBE DEFECT
     Dosage: 1 DF, QD
     Dates: start: 20100524, end: 20100726
  4. IBUPROFEN [Suspect]
     Indication: PAIN
     Dosage: 400 MG, 1X/DAY
     Route: 048
     Dates: start: 20100524, end: 20100726
  5. BIOTIN [Concomitant]
     Indication: PROPHYLAXIS OF NEURAL TUBE DEFECT
     Dosage: 1 DF, QD
     Dates: start: 20100524, end: 20100726
  6. NICOTINIC ACID [Concomitant]
     Indication: PROPHYLAXIS OF NEURAL TUBE DEFECT
     Dosage: 1 DF, QD
     Dates: start: 20100524, end: 20100726
  7. TOCOPHEROL CONCENTRATE CAP [Concomitant]
     Indication: PROPHYLAXIS OF NEURAL TUBE DEFECT
     Dosage: 1 DF, QD
     Dates: start: 20100524, end: 20100726
  8. ASCORBIC ACID [Concomitant]
     Indication: PROPHYLAXIS OF NEURAL TUBE DEFECT
     Dosage: 1 DF, QD
     Dates: start: 20100524, end: 20100726
  9. RETINOL [Concomitant]
     Indication: PROPHYLAXIS OF NEURAL TUBE DEFECT
     Dosage: 1 DF, QD
     Dates: start: 20100524, end: 20100726
  10. VITAMIN D [Concomitant]
     Indication: PROPHYLAXIS OF NEURAL TUBE DEFECT
     Dosage: 1 DF, QD
     Dates: start: 20100524, end: 20100726
  11. ENBREL [Suspect]
     Indication: RHEUMATOID ARTHRITIS
     Dosage: 50 MG, WEEKLY
     Route: 058
     Dates: start: 20100525, end: 20100726
  12. VITAMIN B NOS [Concomitant]
     Indication: PROPHYLAXIS OF NEURAL TUBE DEFECT
     Dosage: 1 DF, QD
     Dates: start: 20100524, end: 20100726

REACTIONS (1)
  - ABORTION SPONTANEOUS [None]
